FAERS Safety Report 7995514-1 (Version None)
Quarter: 2011Q4

REPORT INFORMATION
  Report Type: 
  Country: None (occurrence: None)
  Receive Date: 20111220
  Receipt Date: 20111216
  Transmission Date: 20120403
  Serious: Yes (Death)
  Sender: FDA-Public Use
  Company Number: JP-B.I. PHARMACEUTICALS,INC./RIDGEFIELD-2011-BP-26914NB

PATIENT
  Sex: Female
  Weight: 47.3 kg

DRUGS (9)
  1. DIGOXIN [Concomitant]
     Indication: HYPERTROPHIC CARDIOMYOPATHY
  2. DIGOXIN [Concomitant]
     Indication: NON-OBSTRUCTIVE CARDIOMYOPATHY
  3. TAMBOCOR [Suspect]
     Indication: ATRIAL FIBRILLATION
     Dosage: 100 MG
     Route: 048
     Dates: start: 20110810
  4. TAMBOCOR [Suspect]
     Indication: HYPERTROPHIC CARDIOMYOPATHY
  5. DIGOXIN [Concomitant]
     Indication: ATRIAL FIBRILLATION
     Dosage: 0.25 MG
     Route: 048
     Dates: start: 20110810
  6. PRADAXA [Suspect]
     Indication: CEREBROVASCULAR ACCIDENT PROPHYLAXIS
     Dosage: 300 MG
     Route: 048
     Dates: start: 20110810
  7. VERAPAMIL HCL [Concomitant]
     Indication: ATRIAL FIBRILLATION
     Dosage: 240 MG
     Route: 048
     Dates: start: 20111006, end: 20111114
  8. PRADAXA [Suspect]
     Dosage: 220 MG
     Route: 048
     Dates: start: 20110907, end: 20111127
  9. TAMBOCOR [Suspect]
     Indication: NON-OBSTRUCTIVE CARDIOMYOPATHY

REACTIONS (1)
  - SUDDEN DEATH [None]
